FAERS Safety Report 7966517-8 (Version None)
Quarter: 2011Q4

REPORT INFORMATION
  Report Type: 
  Country: None (occurrence: None)
  Receive Date: 20111208
  Receipt Date: 20111201
  Transmission Date: 20120403
  Serious: Yes (Hospitalization, Other)
  Sender: FDA-Public Use
  Company Number: US-AMGEN-USASP2011060999

PATIENT
  Sex: Female

DRUGS (10)
  1. ENBREL [Suspect]
     Indication: ANKYLOSING SPONDYLITIS
     Dosage: 25 MG, 2 TIMES/WK
  2. BENADRYL [Concomitant]
     Dosage: UNK
  3. PROTONIX [Concomitant]
     Dosage: UNK
  4. TRAMADOL HCL [Concomitant]
     Dosage: UNK
  5. ADVAIR DISKUS 100/50 [Concomitant]
     Dosage: UNK
  6. LOSARTAN POTASSIUM [Concomitant]
     Dosage: UNK
  7. FLONASE [Concomitant]
     Dosage: UNK
  8. TUMS                               /00193601/ [Concomitant]
     Dosage: UNK
  9. EVISTA [Concomitant]
     Dosage: UNK
  10. TYLENOL (CAPLET) [Concomitant]
     Dosage: UNK

REACTIONS (6)
  - RED BLOOD CELL ABNORMALITY [None]
  - TUBULOINTERSTITIAL NEPHRITIS [None]
  - LABORATORY TEST ABNORMAL [None]
  - HYPERTENSION [None]
  - MALAISE [None]
  - RENAL FAILURE [None]
